FAERS Safety Report 19676293 (Version 1)
Quarter: 2021Q3

REPORT INFORMATION
  Report Type: Spontaneous
  Country: FI (occurrence: FI)
  Receive Date: 20210809
  Receipt Date: 20210809
  Transmission Date: 20211014
  Serious: Yes (Disabling, Other)
  Sender: FDA-Public Use
  Company Number: FI-AMGEN-FINSP2021095094

PATIENT
  Age: 22 Year
  Sex: Female

DRUGS (1)
  1. AIMOVIG [Suspect]
     Active Substance: ERENUMAB-AOOE
     Indication: MIGRAINE
     Dosage: UNK UNK, Q4WK
     Route: 065
     Dates: start: 20210311

REACTIONS (5)
  - Constipation [Unknown]
  - Anxiety [Unknown]
  - Dyssomnia [Unknown]
  - Abdominal symptom [Unknown]
  - Abnormal dreams [Unknown]

NARRATIVE: CASE EVENT DATE: 202103
